FAERS Safety Report 13540396 (Version 6)
Quarter: 2018Q1

REPORT INFORMATION
  Report Type: Spontaneous
  Country: DE (occurrence: DE)
  Receive Date: 20170512
  Receipt Date: 20180330
  Transmission Date: 20180508
  Serious: Yes (Death, Life-Threatening, Other)
  Sender: FDA-Public Use
  Company Number: DE-009507513-1705DEU004013

PATIENT
  Age: 75 Year
  Sex: Male

DRUGS (15)
  1. IBRUTINIB [Suspect]
     Active Substance: IBRUTINIB
     Indication: B-CELL LYMPHOMA
     Dosage: UNK
     Dates: start: 20150304
  2. BENDAMUSTINE [Concomitant]
     Active Substance: BENDAMUSTINE
     Indication: B-CELL LYMPHOMA
     Dosage: UNK
     Dates: start: 201202, end: 201204
  3. CYCLOPHOSPHAMIDE. [Concomitant]
     Active Substance: CYCLOPHOSPHAMIDE
     Dosage: 3 CYCLES
     Route: 065
     Dates: start: 201312, end: 201402
  4. MEFLOQUINE [Suspect]
     Active Substance: MEFLOQUINE
     Indication: PROGRESSIVE MULTIFOCAL LEUKOENCEPHALOPATHY
     Dosage: FOR THREE DAYS
     Route: 048
     Dates: start: 2015, end: 2015
  5. MEFLOQUINE [Suspect]
     Active Substance: MEFLOQUINE
     Dosage: FOR THREE DAYS
     Route: 048
     Dates: start: 20150101, end: 20150101
  6. FLUDARABINE PHOSPHATE. [Concomitant]
     Active Substance: FLUDARABINE PHOSPHATE
     Indication: B-CELL LYMPHOMA
     Dosage: 3 CYCLES, DUE TO DISEASE PROGRESSION AND HEMOLYSIS
     Route: 065
     Dates: start: 201309, end: 201311
  7. PREDNISOLONE. [Concomitant]
     Active Substance: PREDNISOLONE
     Indication: B-CELL LYMPHOMA
     Dosage: 6 CYCLES
     Route: 065
     Dates: start: 201302, end: 201306
  8. FLUDARABINE PHOSPHATE. [Concomitant]
     Active Substance: FLUDARABINE PHOSPHATE
     Dosage: UNK
     Route: 065
     Dates: start: 200812, end: 200904
  9. MEFLOQUINE [Suspect]
     Active Substance: MEFLOQUINE
     Dosage: 250 MG, QD FOR 3 DAYS
     Route: 048
     Dates: start: 2015
  10. RITUXIMAB. [Suspect]
     Active Substance: RITUXIMAB
     Indication: B-CELL LYMPHOMA
     Dosage: UNK
     Dates: start: 201202, end: 201204
  11. EPIRUBICIN [Concomitant]
     Active Substance: EPIRUBICIN
     Indication: B-CELL LYMPHOMA
     Dosage: UNK
     Route: 065
     Dates: start: 201302, end: 201306
  12. CYCLOPHOSPHAMIDE. [Concomitant]
     Active Substance: CYCLOPHOSPHAMIDE
     Dosage: UNK
     Route: 065
     Dates: start: 200812, end: 200904
  13. CHLORAMBUCIL [Concomitant]
     Active Substance: CHLORAMBUCIL
     Indication: B-CELL LYMPHOMA
     Dosage: UNK
     Dates: start: 201503
  14. MIRTAZAPINE. [Suspect]
     Active Substance: MIRTAZAPINE
     Indication: PROGRESSIVE MULTIFOCAL LEUKOENCEPHALOPATHY
     Dosage: 60 MG, QD
     Route: 048
     Dates: start: 2015
  15. REMERGIL [Suspect]
     Active Substance: MIRTAZAPINE
     Indication: PROGRESSIVE MULTIFOCAL LEUKOENCEPHALOPATHY
     Dosage: 60 MG, QD
     Route: 048
     Dates: start: 20150101

REACTIONS (20)
  - Diarrhoea [Recovered/Resolved]
  - Bone marrow failure [Unknown]
  - Haemolysis [Unknown]
  - Atrial fibrillation [Unknown]
  - Hyperkeratosis [Unknown]
  - Drug ineffective [Fatal]
  - Paresis [Unknown]
  - Eyelid ptosis [Unknown]
  - Squamous cell carcinoma [Unknown]
  - Condition aggravated [Fatal]
  - Chronic lymphocytic leukaemia [Unknown]
  - Paraesthesia [Unknown]
  - Bone marrow failure [Unknown]
  - Pneumonia aspiration [Fatal]
  - Off label use [Fatal]
  - Hypoaesthesia [Unknown]
  - Dysarthria [Unknown]
  - Polyneuropathy [Unknown]
  - Progressive multifocal leukoencephalopathy [Fatal]
  - Atypical pneumonia [Unknown]

NARRATIVE: CASE EVENT DATE: 201204
